FAERS Safety Report 14527895 (Version 2)
Quarter: 2018Q1

REPORT INFORMATION
  Report Type: Spontaneous
  Country: PL (occurrence: PL)
  Receive Date: 20180213
  Receipt Date: 20180313
  Transmission Date: 20180509
  Serious: Yes (Hospitalization, Other)
  Sender: FDA-Public Use
  Company Number: PL-ALLERGAN-1807012US

PATIENT
  Age: 33 Year
  Sex: Female

DRUGS (1)
  1. MESALAZINE UNK [Suspect]
     Active Substance: MESALAMINE
     Indication: PRODUCT USED FOR UNKNOWN INDICATION
     Dosage: UNK
     Route: 065

REACTIONS (13)
  - Exposure during pregnancy [Unknown]
  - Abdominal pain [Recovering/Resolving]
  - Drug ineffective [Unknown]
  - Microcytic anaemia [Recovering/Resolving]
  - Crohn^s disease [Recovering/Resolving]
  - Premature delivery [Unknown]
  - Hypokalaemia [Recovering/Resolving]
  - Clostridium difficile infection [Recovering/Resolving]
  - Cachexia [Recovering/Resolving]
  - Appendicitis [Unknown]
  - Ascites [Recovering/Resolving]
  - Hepatomegaly [Recovering/Resolving]
  - Oedema peripheral [Recovering/Resolving]
